FAERS Safety Report 10598224 (Version 1)
Quarter: 2014Q4

REPORT INFORMATION
  Report Type: Spontaneous
  Country: US (occurrence: None)
  Receive Date: 20141120
  Receipt Date: 20141120
  Transmission Date: 20150529
  Serious: No
  Sender: FDA-Public Use
  Company Number: None

PATIENT
  Age: 50 Year
  Sex: Male
  Weight: 143.9 kg

DRUGS (1)
  1. TRAMADOL [Suspect]
     Active Substance: TRAMADOL
     Indication: PAIN
     Dosage: 1 TAB
     Route: 048
     Dates: start: 20140924, end: 20140924

REACTIONS (2)
  - Dizziness [None]
  - Anaphylactic reaction [None]

NARRATIVE: CASE EVENT DATE: 20140924
